FAERS Safety Report 24069111 (Version 3)
Quarter: 2024Q3

REPORT INFORMATION
  Report Type: Report from Study
  Country: CN (occurrence: CN)
  Receive Date: 20240710
  Receipt Date: 20240710
  Transmission Date: 20241016
  Serious: No
  Sender: ROCHE
  Company Number: CN-ROCHE-3312056

PATIENT
  Age: 33 Year
  Sex: Female
  Weight: 60.0 kg

DRUGS (5)
  1. ALECTINIB [Suspect]
     Active Substance: ALECTINIB
     Indication: Non-small cell lung cancer metastatic
     Route: 048
     Dates: start: 20220211
  2. HUMAN GRANULOCYTE STIMULATING FACTOR (UNK INGREDIENTS) [Concomitant]
     Indication: Granulocytopenia
     Route: 058
     Dates: start: 20220316, end: 20220316
  3. LORATADINE [Concomitant]
     Active Substance: LORATADINE
     Indication: Hypersensitivity
     Route: 048
     Dates: start: 20230502, end: 20230512
  4. LORATADINE [Concomitant]
     Active Substance: LORATADINE
     Dosage: RELIEVE A COUGH
     Route: 048
     Dates: start: 20230627, end: 20230703
  5. AMBROXOL HYDROCHLORIDE [Concomitant]
     Active Substance: AMBROXOL HYDROCHLORIDE
     Dosage: INDICATION RELIEVE A COUGH
     Route: 048
     Dates: start: 20230502, end: 20230505

REACTIONS (1)
  - Insomnia [Not Recovered/Not Resolved]

NARRATIVE: CASE EVENT DATE: 20221101
